FAERS Safety Report 7962833-4 (Version None)
Quarter: 2011Q4

REPORT INFORMATION
  Report Type: 
  Country: None (occurrence: None)
  Receive Date: 20111207
  Receipt Date: 20111206
  Transmission Date: 20120403
  Serious: Yes (Hospitalization, Disabling, Other)
  Sender: FDA-Public Use
  Company Number: DE-PFIZER INC-2009200491

PATIENT
  Sex: Female

DRUGS (1)
  1. ZOLOFT [Suspect]
     Dosage: UNK
     Dates: start: 19970815, end: 20020101

REACTIONS (3)
  - GENERAL PHYSICAL HEALTH DETERIORATION [None]
  - SUICIDAL IDEATION [None]
  - PERSONALITY CHANGE [None]
